FAERS Safety Report 11374511 (Version 1)
Quarter: 2015Q3

REPORT INFORMATION
  Report Type: Spontaneous
  Country: US (occurrence: US)
  Receive Date: 20150813
  Receipt Date: 20150813
  Transmission Date: 20151125
  Serious: No
  Sender: FDA-Public Use
  Company Number: US-BRISTOL-MYERS SQUIBB COMPANY-BMS-2015-052104

PATIENT
  Sex: Male

DRUGS (1)
  1. ORENCIA [Suspect]
     Active Substance: ABATACEPT
     Indication: PRODUCT USED FOR UNKNOWN INDICATION
     Dosage: 125 MG, UNK
     Route: 058

REACTIONS (6)
  - Paraesthesia [Unknown]
  - Dyspnoea [Unknown]
  - Hypersensitivity [Unknown]
  - Dizziness [Unknown]
  - Drug ineffective [Unknown]
  - Oropharyngeal pain [Unknown]
